FAERS Safety Report 10022393 (Version 1)
Quarter: 2013Q4

REPORT INFORMATION
  Report Type: Spontaneous
  Country: CA (occurrence: None)
  Receive Date: 20131223
  Receipt Date: 20131223
  Transmission Date: 20140711
  Serious: Yes (Other)
  Sender: FDA-Public Use
  Company Number: WIL-001-13-CA

PATIENT
  Age: 1 Year
  Sex: Male

DRUGS (1)
  1. WILATE [Suspect]
     Indication: PROPHYLAXIS
     Dosage: 50 IU/KG (1X 1/WEEKS), INTRAVENOUS (NOT OTHERWISE SPECIFIED)?
     Route: 042
     Dates: start: 20120823, end: 20121107

REACTIONS (1)
  - Factor VIII inhibition [None]
